FAERS Safety Report 19423370 (Version 1)
Quarter: 2021Q2

REPORT INFORMATION
  Report Type: Spontaneous
  Country: FR (occurrence: FR)
  Receive Date: 20210616
  Receipt Date: 20210616
  Transmission Date: 20210717
  Serious: Yes (Hospitalization)
  Sender: FDA-Public Use
  Company Number: FR-ACCORD-228052

PATIENT
  Age: 56 Year
  Sex: Female
  Weight: 61 kg

DRUGS (9)
  1. FUROSEMIDE. [Suspect]
     Active Substance: FUROSEMIDE
     Indication: HYPERTENSION
     Route: 048
     Dates: end: 202103
  2. KEYTRUDA [Suspect]
     Active Substance: PEMBROLIZUMAB
     Indication: LUNG ADENOCARCINOMA
     Route: 042
     Dates: start: 202001, end: 20201215
  3. IRBESARTAN. [Suspect]
     Active Substance: IRBESARTAN
     Indication: HYPERTENSION
     Route: 048
     Dates: end: 202103
  4. TAVANIC [Suspect]
     Active Substance: LEVOFLOXACIN
     Indication: RHINITIS
     Route: 048
     Dates: start: 20210106, end: 20210116
  5. SPECIAFOLD [Concomitant]
  6. GLYCOPYRRONIUM\INDACATEROL [Concomitant]
     Active Substance: GLYCOPYRRONIUM\INDACATEROL
  7. POTASSIUM [Concomitant]
     Active Substance: POTASSIUM
  8. MIFLA [Concomitant]
  9. FLUCON [Concomitant]

REACTIONS (1)
  - Renal tubular necrosis [Recovered/Resolved with Sequelae]
